FAERS Safety Report 7311470-3 (Version None)
Quarter: 2011Q1

REPORT INFORMATION
  Report Type: 
  Country: None (occurrence: None)
  Receive Date: 20110216
  Receipt Date: 20110216
  Transmission Date: 20110831
  Serious: Yes (Hospitalization)
  Sender: FDA-Public Use
  Company Number: None

PATIENT
  Sex: Male
  Weight: 83.3 kg

DRUGS (2)
  1. IRINOTECAN HYDROCHLORIDE [Suspect]
     Indication: SARCOMA METASTATIC
     Dosage: 160MG DAY 1, 8, 15 IV
     Route: 042
     Dates: start: 20101130, end: 20110118
  2. TENSIROLIMUS [Suspect]
     Indication: SARCOMA METASTATIC
     Dosage: 20 MG DAY 1, 8, 15  IV
     Route: 042
     Dates: start: 20101130, end: 20110118

REACTIONS (3)
  - PLEURAL EFFUSION [None]
  - ABDOMINAL PAIN LOWER [None]
  - FLANK PAIN [None]
